FAERS Safety Report 4964479-9 (Version None)
Quarter: 2006Q1

REPORT INFORMATION
  Report Type: 
  Country: None (occurrence: None)
  Receive Date: 20060331
  Receipt Date: 20060315
  Transmission Date: 20060701
  Serious: Yes (Other)
  Sender: FDA-Public Use
  Company Number: BR200603004491

PATIENT
  Age: 46 Year
  Sex: Male

DRUGS (1)
  1. CIALIS [Suspect]
     Dosage: 5 MG, ORAL
     Route: 048

REACTIONS (3)
  - ARRHYTHMIA [None]
  - CHEST PAIN [None]
  - TINNITUS [None]
